FAERS Safety Report 6316676-8 (Version None)
Quarter: 2009Q3

REPORT INFORMATION
  Report Type: 
  Country: None (occurrence: None)
  Receive Date: 20090820
  Receipt Date: 20090814
  Transmission Date: 20100115
  Serious: Yes (Life-Threatening)
  Sender: FDA-Public Use
  Company Number: GB-MERCK-0908GBR00041

PATIENT
  Age: 46 Year
  Sex: Male
  Weight: 85 kg

DRUGS (6)
  1. FOSAMAX [Suspect]
     Indication: PROPHYLAXIS
     Route: 048
     Dates: start: 20080720, end: 20080801
  2. CALCIUM CARBONATE AND CHOLECALCIFEROL [Concomitant]
     Indication: PROPHYLAXIS
     Route: 048
  3. DIHYDROCODEINE [Concomitant]
     Indication: PAIN
     Route: 048
  4. OMEPRAZOLE [Concomitant]
     Indication: PROPHYLAXIS
     Route: 048
  5. ACETAMINOPHEN [Concomitant]
     Indication: PAIN
     Route: 048
  6. PYRIDOSTIGMINE BROMIDE [Concomitant]
     Route: 048

REACTIONS (1)
  - THROAT TIGHTNESS [None]
